FAERS Safety Report 23890621 (Version 1)
Quarter: 2024Q2

REPORT INFORMATION
  Report Type: Spontaneous
  Country: US (occurrence: None)
  Receive Date: 20240523
  Receipt Date: 20240523
  Transmission Date: 20240716
  Serious: Yes (Other)
  Sender: FDA-Public Use
  Company Number: None

PATIENT
  Age: 74 Year
  Sex: Female

DRUGS (9)
  1. PROLIA [Suspect]
     Active Substance: DENOSUMAB
     Indication: Osteopenia
     Dosage: OTHER FREQUENCY : EVERY 6 MONTHS;?
     Route: 058
     Dates: start: 20220912, end: 20230927
  2. PROLIA [Suspect]
     Active Substance: DENOSUMAB
     Indication: Hypercalcaemia
  3. fosinopril 40mg daily [Concomitant]
  4. metoprolol XL 25mg daily [Concomitant]
  5. allopurinol 300mg daily [Concomitant]
  6. cholecalciferol 2000IU daily [Concomitant]
  7. Lutein 20mg daily [Concomitant]
  8. spironolactone 25mg daily [Concomitant]
  9. magnesium oxide 400mg daily [Concomitant]

REACTIONS (1)
  - Neuroendocrine carcinoma of the skin [None]

NARRATIVE: CASE EVENT DATE: 20240226
